FAERS Safety Report 15262678 (Version 10)
Quarter: 2022Q3

REPORT INFORMATION
  Report Type: Report from Study
  Country: IN (occurrence: IN)
  Receive Date: 20180809
  Receipt Date: 20220419
  Transmission Date: 20221026
  Serious: Yes (Other)
  Sender: FDA-Public Use
  Company Number: IN-002147023-PHHY2018IN061431

PATIENT

DRUGS (10)
  1. RUXOLITINIB [Suspect]
     Active Substance: RUXOLITINIB
     Indication: Myelofibrosis
     Dosage: 10 MG, BID
     Route: 048
     Dates: start: 20180510, end: 20180530
  2. RUXOLITINIB [Suspect]
     Active Substance: RUXOLITINIB
     Indication: Polycythaemia vera
     Dosage: UNK
     Route: 065
     Dates: start: 20180801
  3. RUXOLITINIB [Suspect]
     Active Substance: RUXOLITINIB
     Dosage: 15 MG, BID
     Route: 048
     Dates: start: 20190616, end: 20220104
  4. RUXOLITINIB [Suspect]
     Active Substance: RUXOLITINIB
     Dosage: 15 MG, BID
     Route: 048
     Dates: start: 20220113
  5. RUXOLITINIB [Suspect]
     Active Substance: RUXOLITINIB
     Dosage: 10 MG, BID
     Route: 065
     Dates: start: 20220218
  6. RUXOLITINIB [Suspect]
     Active Substance: RUXOLITINIB
     Dosage: 20 MG, BID
     Route: 048
     Dates: start: 20220304
  7. RUXOLITINIB [Suspect]
     Active Substance: RUXOLITINIB
     Dosage: 20 MG, BID
     Route: 048
     Dates: start: 20220421
  8. RUXOLITINIB [Suspect]
     Active Substance: RUXOLITINIB
     Dosage: 20 MG, BID
     Route: 048
     Dates: start: 20220524
  9. RUXOLITINIB [Suspect]
     Active Substance: RUXOLITINIB
     Dosage: 15 MG, QD
     Route: 065
     Dates: start: 202207
  10. RUXOLITINIB [Suspect]
     Active Substance: RUXOLITINIB
     Dosage: 15 MG, BID
     Route: 065
     Dates: start: 20220914

REACTIONS (5)
  - COVID-19 [Recovered/Resolved]
  - Fungal infection [Unknown]
  - Haemoglobin decreased [Unknown]
  - Product use issue [Unknown]
  - Headache [Unknown]

NARRATIVE: CASE EVENT DATE: 20180520
